FAERS Safety Report 16908748 (Version 1)
Quarter: 2019Q4

REPORT INFORMATION
  Report Type: Spontaneous
  Country: US (occurrence: US)
  Receive Date: 20190820
  Receipt Date: 20190820
  Transmission Date: 20200122
  Serious: No
  Sender: FDA-Public Use
  Company Number: None

PATIENT
  Age: 55 Year
  Sex: Male

DRUGS (10)
  1. MAVYRET [Suspect]
     Active Substance: GLECAPREVIR\PIBRENTASVIR
     Route: 048
     Dates: start: 20190727
  2. BUPROPRION [Concomitant]
     Active Substance: BUPROPION
  3. MAVYRET [Suspect]
     Active Substance: GLECAPREVIR\PIBRENTASVIR
  4. SIMVASTATIN. [Concomitant]
     Active Substance: SIMVASTATIN
  5. LOSARTAN. [Concomitant]
     Active Substance: LOSARTAN
  6. QUETIAPINE. [Concomitant]
     Active Substance: QUETIAPINE
  7. IRON [Concomitant]
     Active Substance: IRON
  8. ALEVE [Concomitant]
     Active Substance: NAPROXEN SODIUM
  9. DULOXETINE. [Concomitant]
     Active Substance: DULOXETINE
  10. HCTZ [Concomitant]
     Active Substance: HYDROCHLOROTHIAZIDE

REACTIONS (1)
  - Fatigue [None]

NARRATIVE: CASE EVENT DATE: 20190728
